FAERS Safety Report 20624673 (Version 1)
Quarter: 2022Q1

REPORT INFORMATION
  Report Type: Spontaneous
  Country: IN (occurrence: IN)
  Receive Date: 20220323
  Receipt Date: 20220323
  Transmission Date: 20220423
  Serious: Yes (Hospitalization, Other)
  Sender: FDA-Public Use
  Company Number: IN-STRIDES ARCOLAB LIMITED-2022SP002817

PATIENT
  Age: 48 Year
  Sex: Male

DRUGS (3)
  1. METRONIDAZOLE [Suspect]
     Active Substance: METRONIDAZOLE
     Indication: Amoebiasis
     Dosage: 800 MILLIGRAM, TID
     Route: 065
  2. METRONIDAZOLE [Suspect]
     Active Substance: METRONIDAZOLE
     Indication: Giardiasis
     Dosage: UNK, THIS PATTERN REPEATED MULTIPLE TIMES
     Route: 065
  3. METRONIDAZOLE [Suspect]
     Active Substance: METRONIDAZOLE
     Dosage: 800 MILLIGRAM, TID, HE DECIDED TO CONTINUE METRONIDAZOLE IN THE SAME DOSAGE FOR THE PREVIOUS 5 MONTH
     Route: 065

REACTIONS (5)
  - Brain oedema [Recovered/Resolved]
  - Polyneuropathy [Recovered/Resolved]
  - Peripheral sensorimotor neuropathy [Recovered/Resolved]
  - Intentional product misuse [Unknown]
  - Off label use [Unknown]
